FAERS Safety Report 8482877-6 (Version None)
Quarter: 2012Q3

REPORT INFORMATION
  Report Type: 
  Country: None (occurrence: None)
  Receive Date: 20120702
  Receipt Date: 20120620
  Transmission Date: 20120928
  Serious: Yes (Hospitalization, Other)
  Sender: FDA-Public Use
  Company Number: JP-ACTELION-A-CH2012-67724

PATIENT
  Age: 16 Year
  Sex: Male
  Weight: 24.1 kg

DRUGS (1)
  1. TRACLEER [Suspect]
     Indication: PRODUCT USED FOR UNKNOWN INDICATION
     Dosage: UNK
     Route: 048

REACTIONS (6)
  - PROTEIN-LOSING GASTROENTEROPATHY [None]
  - ESCHERICHIA INFECTION [None]
  - CYANOSIS [None]
  - SEPSIS [None]
  - OEDEMA [None]
  - HYPOALBUMINAEMIA [None]
